FAERS Safety Report 4345261-2 (Version None)
Quarter: 2004Q2

REPORT INFORMATION
  Report Type: 
  Country: None (occurrence: None)
  Receive Date: 20040423
  Receipt Date: 20040305
  Transmission Date: 20050107
  Serious: Yes (Hospitalization)
  Sender: FDA-Public Use
  Company Number: PHNU2004DE01133

PATIENT
  Age: 47 Year
  Sex: Male
  Weight: 96 kg

DRUGS (3)
  1. SANDIMMUNE [Suspect]
     Indication: RENAL TRANSPLANT
     Dosage: 425MG/DAY
     Dates: start: 20011016
  2. CELLCEPT [Suspect]
     Indication: IMMUNOSUPPRESSION
     Dosage: 2000MG/DAY
     Route: 048
     Dates: start: 20011016
  3. DECORTIN [Suspect]
     Indication: IMMUNOSUPPRESSION
     Dosage: 7.5MG/DAY
     Dates: start: 20011016

REACTIONS (7)
  - BACTERIAL PYELONEPHRITIS [None]
  - BLOOD CREATININE INCREASED [None]
  - HYDROCELE OPERATION [None]
  - LEUKOCYTURIA [None]
  - PYELONEPHRITIS [None]
  - PYREXIA [None]
  - URINARY TRACT INFECTION [None]
